FAERS Safety Report 24689258 (Version 2)
Quarter: 2025Q3

REPORT INFORMATION
  Report Type: Spontaneous
  Country: EU (occurrence: EU)
  Receive Date: 20241203
  Receipt Date: 20250803
  Transmission Date: 20251021
  Serious: Yes (Other)
  Sender: ALEXION PHARMACEUTICALS
  Company Number: EU-BAYER-2024A158239

PATIENT
  Age: 85 Year
  Sex: Male

DRUGS (3)
  1. CRESTOR [Interacting]
     Active Substance: ROSUVASTATIN CALCIUM
     Indication: Product used for unknown indication
     Route: 065
  2. NUBEQA [Interacting]
     Active Substance: DAROLUTAMIDE
     Indication: Prostate cancer recurrent
     Dosage: 600 MILLIGRAM, 1/DAY
     Route: 065
     Dates: start: 20241026
  3. Previscan [Concomitant]
     Route: 065

REACTIONS (2)
  - Drug interaction [Unknown]
  - International normalised ratio increased [Recovered/Resolved]
